FAERS Safety Report 4887061-0 (Version None)
Quarter: 2006Q1

REPORT INFORMATION
  Report Type: 
  Country: None (occurrence: None)
  Receive Date: 20060118
  Receipt Date: 20060106
  Transmission Date: 20060701
  Serious: Yes (Death)
  Sender: FDA-Public Use
  Company Number: US_0509121818

PATIENT
  Age: 47 Year
  Sex: Male
  Weight: 72.6 kg

DRUGS (3)
  1. ZYPREXA [Suspect]
     Dosage: ORAL
     Route: 048
     Dates: start: 19960101
  2. ARIPIPRAZOLE (ARIPIPRAZOLE) [Concomitant]
  3. ZIPRASIDONE HCL [Concomitant]

REACTIONS (2)
  - DIABETES MELLITUS [None]
  - WEIGHT DECREASED [None]
